FAERS Safety Report 5286911-6 (Version None)
Quarter: 2007Q1

REPORT INFORMATION
  Report Type: 
  Country: None (occurrence: None)
  Receive Date: 20070329
  Receipt Date: 20070320
  Transmission Date: 20070707
  Serious: Yes (Other)
  Sender: FDA-Public Use
  Company Number: 238651

PATIENT
  Age: 84 Year
  Sex: Male
  Weight: 61 kg

DRUGS (2)
  1. RITUXAN [Suspect]
     Indication: DRUG USE FOR UNKNOWN INDICATION
     Dosage: 640 MG, INTRAVENOUS
     Route: 042
  2. PREDNISONE TAB [Concomitant]

REACTIONS (3)
  - ANURIA [None]
  - CHILLS [None]
  - HYPOTENSION [None]
